FAERS Safety Report 14627999 (Version 3)
Quarter: 2018Q3

REPORT INFORMATION
  Report Type: Not Available
  Country: US (occurrence: US)
  Receive Date: 20180312
  Receipt Date: 20180924
  Transmission Date: 20181010
  Serious: Yes (Hospitalization, Other)
  Sender: FDA-Public Use
  Company Number: US-NEUROCRINE BIOSCIENCES INC.-2018NBI00657

PATIENT
  Age: 69 Year
  Sex: Female

DRUGS (12)
  1. INGREZZA [Suspect]
     Active Substance: VALBENAZINE
     Route: 048
     Dates: start: 20170915
  2. INGREZZA [Suspect]
     Active Substance: VALBENAZINE
     Route: 048
     Dates: start: 20170926
  3. SIMVASTATIN. [Concomitant]
     Active Substance: SIMVASTATIN
     Indication: HYPERCHOLESTEROLAEMIA
     Dosage: IN THE EVENING
  4. CLONAZEPAM. [Concomitant]
     Active Substance: CLONAZEPAM
     Indication: TREMOR
     Dosage: AT NIGHT
  5. PLAVIX [Concomitant]
     Active Substance: CLOPIDOGREL BISULFATE
     Indication: ANGIOPATHY
  6. INGREZZA [Suspect]
     Active Substance: VALBENAZINE
     Route: 048
     Dates: start: 20170918
  7. DEXAMETHASONE. [Concomitant]
     Active Substance: DEXAMETHASONE
  8. NIFEDIPINE. [Concomitant]
     Active Substance: NIFEDIPINE
     Indication: HYPERTENSION
  9. KEPPRA [Concomitant]
     Active Substance: LEVETIRACETAM
     Indication: SEIZURE
  10. INGREZZA [Suspect]
     Active Substance: VALBENAZINE
     Indication: TREMOR
     Route: 048
     Dates: start: 20170918, end: 20170925
  11. ASPIRIN. [Concomitant]
     Active Substance: ASPIRIN
     Indication: ANGIOPATHY
  12. CITALOPRAM [Concomitant]
     Active Substance: CITALOPRAM HYDROBROMIDE
     Indication: DEPRESSION

REACTIONS (6)
  - Decreased interest [Unknown]
  - Cerebrovascular accident [Recovering/Resolving]
  - Off label use [Unknown]
  - Dysstasia [Unknown]
  - Bradykinesia [Unknown]
  - Spinal column stenosis [Unknown]

NARRATIVE: CASE EVENT DATE: 2018
